FAERS Safety Report 8820105 (Version 1)
Quarter: 2012Q4

REPORT INFORMATION
  Report Type: 
  Country: US (occurrence: US)
  Receive Date: 20121001
  Receipt Date: 20121001
  Transmission Date: 20130627
  Serious: No
  Sender: FDA-Public Use
  Company Number: US-009507513-1209USA011979

PATIENT
  Age: 27 Year
  Sex: Female
  Weight: 63.49 kg

DRUGS (1)
  1. NUVARING [Suspect]
     Dosage: 1 ring for 3 weeks followed by a week free break
     Route: 067
     Dates: start: 2010

REACTIONS (1)
  - Device expulsion [Unknown]
